FAERS Safety Report 4360632-6 (Version None)
Quarter: 2004Q2

REPORT INFORMATION
  Report Type: 
  Country: None (occurrence: None)
  Receive Date: 20040519
  Receipt Date: 20040519
  Transmission Date: 20050107
  Serious: Yes (Death)
  Sender: FDA-Public Use
  Company Number: None

PATIENT
  Age: 80 Year
  Sex: Female
  Weight: 54.4316 kg

DRUGS (2)
  1. COUMADIN [Suspect]
     Dosage: 7.5 MG DAILY SUBCUTANEOUS
     Route: 058
     Dates: start: 20031210, end: 20031214
  2. LOVENOX [Suspect]
     Dosage: 80 MG Q 12 H ORAL
     Route: 048
     Dates: start: 20031209, end: 20031214

REACTIONS (1)
  - HAEMORRHAGE [None]
